FAERS Safety Report 16217277 (Version 1)
Quarter: 2019Q2

REPORT INFORMATION
  Report Type: Spontaneous
  Country: US (occurrence: US)
  Receive Date: 20190419
  Receipt Date: 20190419
  Transmission Date: 20190711
  Serious: No
  Sender: FDA-Public Use
  Company Number: US-009507513-1903USA011414

PATIENT
  Age: 62 Year
  Sex: Male

DRUGS (13)
  1. AMOXICILLIN. [Concomitant]
     Active Substance: AMOXICILLIN
  2. AZELASTINE HYDROCHLORIDE. [Concomitant]
     Active Substance: AZELASTINE HYDROCHLORIDE
     Dosage: UNK
     Route: 045
  3. PREDNISONE. [Concomitant]
     Active Substance: PREDNISONE
     Dosage: AS NEEDED
  4. METOPROLOL. [Concomitant]
     Active Substance: METOPROLOL
  5. MELOXICAM. [Concomitant]
     Active Substance: MELOXICAM
  6. VICKS COUGH DROPS [Concomitant]
  7. AMIODARONE [Concomitant]
     Active Substance: AMIODARONE
  8. ASMANEX HFA [Suspect]
     Active Substance: MOMETASONE FUROATE
     Indication: ASTHMA-CHRONIC OBSTRUCTIVE PULMONARY DISEASE OVERLAP SYNDROME
     Dosage: 220 MCG, TWICE A DAY
     Route: 055
     Dates: start: 2016, end: 20190318
  9. ASMANEX HFA [Suspect]
     Active Substance: MOMETASONE FUROATE
     Dosage: 220 MCG, TWICE A DAY
     Route: 055
     Dates: start: 20190321
  10. ASMANEX [Suspect]
     Active Substance: MOMETASONE FUROATE
     Indication: ASTHMA-CHRONIC OBSTRUCTIVE PULMONARY DISEASE OVERLAP SYNDROME
     Dosage: 220 Y, 220 MCG, TWICE A DAY
     Route: 055
     Dates: start: 20190319, end: 20190320
  11. SINGULAIR [Concomitant]
     Active Substance: MONTELUKAST SODIUM
  12. MUCINEX [Concomitant]
     Active Substance: GUAIFENESIN
  13. FLUTICASONE PROPIONATE. [Concomitant]
     Active Substance: FLUTICASONE PROPIONATE
     Route: 045

REACTIONS (7)
  - Product use in unapproved indication [Unknown]
  - Nasopharyngitis [Not Recovered/Not Resolved]
  - Therapeutic response unexpected [Unknown]
  - Bronchial disorder [Not Recovered/Not Resolved]
  - Crying [Not Recovered/Not Resolved]
  - Drug ineffective [Not Recovered/Not Resolved]
  - Therapeutic product effect incomplete [Not Recovered/Not Resolved]

NARRATIVE: CASE EVENT DATE: 2016
